FAERS Safety Report 8261175-X (Version None)
Quarter: 2012Q2

REPORT INFORMATION
  Report Type: 
  Country: None (occurrence: None)
  Receive Date: 20120405
  Receipt Date: 20120328
  Transmission Date: 20120825
  Serious: Yes (Hospitalization)
  Sender: FDA-Public Use
  Company Number: US-US-EMD SERONO, INC.-7122687

PATIENT
  Sex: Female

DRUGS (4)
  1. AMPYRA [Concomitant]
     Indication: PRODUCT USED FOR UNKNOWN INDICATION
  2. REBIF [Suspect]
     Indication: PRODUCT USED FOR UNKNOWN INDICATION
     Route: 058
     Dates: start: 20060227
  3. AMPYRA [Concomitant]
  4. NUVIGIL [Concomitant]
     Indication: FATIGUE

REACTIONS (4)
  - INJECTION SITE HAEMORRHAGE [None]
  - DIARRHOEA [None]
  - SINUSITIS [None]
  - ROTATOR CUFF REPAIR [None]
